FAERS Safety Report 4816717-0 (Version None)
Quarter: 2005Q4

REPORT INFORMATION
  Report Type: 
  Country: None (occurrence: None)
  Receive Date: 20051101
  Receipt Date: 20040625
  Transmission Date: 20060501
  Serious: Yes (Hospitalization)
  Sender: FDA-Public Use
  Company Number: PHBS2004JP08558

PATIENT
  Age: 38 Year
  Sex: Male

DRUGS (1)
  1. LAMISIL [Suspect]
     Indication: NAIL TINEA
     Dosage: 125 MG/D
     Route: 048
     Dates: start: 20040408, end: 20040502

REACTIONS (24)
  - ACUTE GENERALISED EXANTHEMATOUS PUSTULOSIS [None]
  - ALANINE AMINOTRANSFERASE INCREASED [None]
  - ANOREXIA [None]
  - ASPARTATE AMINOTRANSFERASE INCREASED [None]
  - BLOOD CREATININE INCREASED [None]
  - C-REACTIVE PROTEIN INCREASED [None]
  - ERYTHEMA [None]
  - EXFOLIATIVE RASH [None]
  - EXTRAVASATION BLOOD [None]
  - HEPATIC FUNCTION ABNORMAL [None]
  - HUMAN HERPESVIRUS 6 INFECTION [None]
  - LYMPHADENOPATHY [None]
  - NAUSEA [None]
  - NEUTROPHIL COUNT INCREASED [None]
  - PYREXIA [None]
  - RASH ERYTHEMATOUS [None]
  - RASH PUSTULAR [None]
  - RENAL IMPAIRMENT [None]
  - SKIN HYPERTROPHY [None]
  - SKIN INFECTION [None]
  - STAPHYLOCOCCAL INFECTION [None]
  - STREPTOCOCCAL INFECTION [None]
  - STREPTOKINASE ANTIBODY INCREASED [None]
  - WHITE BLOOD CELL COUNT INCREASED [None]
